FAERS Safety Report 19780475 (Version 1)
Quarter: 2021Q3

REPORT INFORMATION
  Report Type: Spontaneous
  Country: CN (occurrence: CN)
  Receive Date: 20210902
  Receipt Date: 20210902
  Transmission Date: 20211014
  Serious: Yes (Other)
  Sender: FDA-Public Use
  Company Number: CN-BAYER-2021-203821

PATIENT
  Age: 67 Year
  Sex: Male
  Weight: 67 kg

DRUGS (2)
  1. STIVARGA [Suspect]
     Active Substance: REGORAFENIB
     Indication: COLON CANCER
     Dosage: 80 MG, QD
     Route: 048
     Dates: start: 20210819, end: 20210827
  2. COMPOUND AMINO ACID INJECTION (18AA?V?SF) [Concomitant]
     Indication: COLON CANCER
     Dosage: 250 ML, QD
     Route: 041
     Dates: start: 20210819, end: 20210819

REACTIONS (2)
  - Myelosuppression [Unknown]
  - Off label use [None]

NARRATIVE: CASE EVENT DATE: 20210819
